FAERS Safety Report 10519856 (Version 1)
Quarter: 2014Q4

REPORT INFORMATION
  Report Type: Report from Study
  Country: CA (occurrence: CA)
  Receive Date: 20141015
  Receipt Date: 20141015
  Transmission Date: 20150528
  Serious: Yes (Other)
  Sender: FDA-Public Use
  Company Number: CA-JNJFOC-20141007067

PATIENT
  Age: 49 Year
  Sex: Male
  Weight: 117 kg

DRUGS (2)
  1. REMICADE [Suspect]
     Active Substance: INFLIXIMAB
     Indication: CROHN^S DISEASE
     Route: 042
  2. REMICADE [Suspect]
     Active Substance: INFLIXIMAB
     Indication: CROHN^S DISEASE
     Route: 042
     Dates: start: 20101009, end: 20101009

REACTIONS (6)
  - Tachycardia [Recovered/Resolved]
  - Chills [Recovered/Resolved]
  - Infusion related reaction [Recovering/Resolving]
  - Cough [Recovered/Resolved]
  - Chest discomfort [Recovered/Resolved]
  - Body temperature increased [Recovering/Resolving]

NARRATIVE: CASE EVENT DATE: 20141009
